FAERS Safety Report 6987405-X (Version None)
Quarter: 2010Q3

REPORT INFORMATION
  Report Type: 
  Country: None (occurrence: None)
  Receive Date: 20100916
  Receipt Date: 20100902
  Transmission Date: 20110219
  Serious: Yes (Hospitalization, Other)
  Sender: FDA-Public Use
  Company Number: PHHY2010US49044

PATIENT
  Sex: Male
  Weight: 93.8 kg

DRUGS (15)
  1. DIOVAN HCT [Suspect]
     Indication: HYPERTENSION
     Dosage: 2 PILLS PER DAY, ONE AT MORNING AND ONE AT AFTERNOON
     Dates: start: 20100501
  2. DIOVAN HCT [Suspect]
     Dosage: ONE PILL PER DAY
     Dates: start: 20100720
  3. TEKTURNA [Suspect]
     Dosage: 300 MG, QD
     Route: 048
     Dates: start: 20100316
  4. TEKTURNA [Suspect]
     Dosage: 150 MG, QD
     Route: 048
     Dates: start: 20100510
  5. OMEPRAZOLE [Concomitant]
     Indication: GASTROOESOPHAGEAL REFLUX DISEASE
     Dosage: 20 MG, QD
     Route: 048
     Dates: start: 20100218
  6. BYSTOLIC [Concomitant]
     Indication: HYPERTENSION
     Dosage: 10 MG, QD
     Route: 048
     Dates: start: 20100510
  7. ALPRAZOLAM [Concomitant]
     Indication: ANXIETY
     Dosage: 0.5 MG, BID
     Dates: start: 20100218
  8. ASPIRIN [Concomitant]
     Dosage: 81 MG, QD
     Route: 048
  9. COREG [Concomitant]
     Dosage: 6.25 MG, BID
     Route: 048
  10. BUSPIRONE HYDROCHLORIDE [Concomitant]
     Dosage: 15 MG, QD
     Route: 048
  11. VITAMIN E [Concomitant]
     Dosage: 400 UNITS, ONCE PER DAY
     Route: 048
  12. CELEBREX [Concomitant]
     Indication: OSTEOARTHRITIS
     Dosage: 200 MG, QD, PRN
     Route: 048
     Dates: start: 20100218
  13. CRESTOR [Concomitant]
     Indication: HYPERLIPIDAEMIA
     Dosage: 5 MG, WEEK
     Route: 048
     Dates: start: 20100510
  14. TOPROL-XL [Concomitant]
     Indication: HYPERSENSITIVITY
  15. PRESERVISION /FRA/ [Concomitant]

REACTIONS (9)
  - BLOOD POTASSIUM DECREASED [None]
  - BLOOD PRESSURE INCREASED [None]
  - CHEST PAIN [None]
  - DIZZINESS [None]
  - DRUG DOSE OMISSION [None]
  - FATIGUE [None]
  - FEELING ABNORMAL [None]
  - LETHARGY [None]
  - SOMNOLENCE [None]
